FAERS Safety Report 8345336-7 (Version None)
Quarter: 2012Q2

REPORT INFORMATION
  Report Type: 
  Country: None (occurrence: None)
  Receive Date: 20120402
  Receipt Date: 20110602
  Transmission Date: 20120825
  Serious: Yes (Death, Other)
  Sender: FDA-Public Use
  Company Number: 284333USA

PATIENT

DRUGS (1)
  1. AMPHETAMINE AND DEXTROAMPHETAMINE SALTS [Suspect]

REACTIONS (1)
  - CARDIAC ARREST [None]
